FAERS Safety Report 14079767 (Version 2)
Quarter: 2017Q4

REPORT INFORMATION
  Report Type: Spontaneous
  Country: JP (occurrence: JP)
  Receive Date: 20171012
  Receipt Date: 20171101
  Transmission Date: 20180321
  Serious: Yes (Hospitalization)
  Sender: FDA-Public Use
  Company Number: JP-JNJFOC-20170407094

PATIENT
  Age: 78 Year
  Sex: Male
  Weight: 65 kg

DRUGS (12)
  1. AZILVA [Concomitant]
     Active Substance: AZILSARTAN KAMEDOXOMIL
     Route: 048
     Dates: start: 20141031
  2. SALOBEL [Concomitant]
     Active Substance: ALLOPURINOL
     Route: 048
     Dates: start: 20160722
  3. ZETIA [Concomitant]
     Active Substance: EZETIMIBE
     Route: 048
     Dates: start: 20100219, end: 20170210
  4. SPIRONOLACTONE. [Concomitant]
     Active Substance: SPIRONOLACTONE
     Route: 048
     Dates: start: 20100917
  5. BAYASPIRIN [Concomitant]
     Active Substance: ASPIRIN
     Dosage: START DATE: BEFORE 2009
     Route: 048
  6. PITAVASTATIN CALCIUM [Concomitant]
     Active Substance: PITAVASTATIN CALCIUM
     Route: 048
     Dates: start: 20170210
  7. FRANDOL S [Concomitant]
     Active Substance: ISOSORBIDE DINITRATE
     Dosage: START DATE: BEFORE 2009
     Route: 062
  8. POTASSIUM CHLORIDE. [Concomitant]
     Active Substance: POTASSIUM CHLORIDE
     Route: 048
     Dates: start: 20101224
  9. MOHRUS [Concomitant]
     Active Substance: KETOPROFEN
     Route: 062
     Dates: start: 20140905
  10. BISONO [Concomitant]
     Active Substance: BISOPROLOL
     Route: 062
     Dates: start: 20150130
  11. CANAGLU [Suspect]
     Active Substance: CANAGLIFLOZIN
     Indication: TYPE 2 DIABETES MELLITUS
     Route: 048
     Dates: start: 20160923
  12. XARELTO [Concomitant]
     Active Substance: RIVAROXABAN
     Route: 048
     Dates: start: 20121228

REACTIONS (2)
  - Colon cancer [Recovering/Resolving]
  - Anaemia [Not Recovered/Not Resolved]

NARRATIVE: CASE EVENT DATE: 20161118
